FAERS Safety Report 7309158-8 (Version None)
Quarter: 2011Q1

REPORT INFORMATION
  Report Type: 
  Country: None (occurrence: None)
  Receive Date: 20110223
  Receipt Date: 20110214
  Transmission Date: 20110831
  Serious: Yes (Death, Other)
  Sender: FDA-Public Use
  Company Number: US-ELI_LILLY_AND_COMPANY-US201102003822

PATIENT
  Age: 75 Year
  Sex: Female
  Weight: 63.492 kg

DRUGS (4)
  1. ASPIRIN [Concomitant]
  2. EFFIENT [Suspect]
     Indication: STENT PLACEMENT
     Dosage: 60 MG, LOADING DOSE
     Dates: start: 20110209
  3. EFFIENT [Suspect]
     Dosage: 10 MG, DAILY (1/D)
  4. ANGIOMAX [Concomitant]

REACTIONS (4)
  - DEATH [None]
  - ABDOMINAL PAIN UPPER [None]
  - BLOOD PRESSURE DECREASED [None]
  - RETROPERITONEAL HAEMORRHAGE [None]
